FAERS Safety Report 4870896-8 (Version None)
Quarter: 2005Q4

REPORT INFORMATION
  Report Type: 
  Country: None (occurrence: None)
  Receive Date: 20051229
  Receipt Date: 20051220
  Transmission Date: 20060501
  Serious: Yes (Hospitalization)
  Sender: FDA-Public Use
  Company Number: 2005171132

PATIENT
  Age: 90 Year
  Sex: Male

DRUGS (7)
  1. AMLODIPINE [Suspect]
     Indication: HYPERTENSION
     Dosage: ORAL
     Route: 048
     Dates: start: 20050928, end: 20051012
  2. INSULATARD NPH HUMAN [Concomitant]
  3. FUROSEMIDE [Concomitant]
  4. NEURONTIN [Concomitant]
  5. ASPIRIN [Concomitant]
  6. MOVICOL (MACROGOL, POTASSIUM CHLORIDE, SODIUM BICARBONATE, SODIUM CHLO [Concomitant]
  7. DOLIPRANE (PARACETAMOL) [Concomitant]

REACTIONS (16)
  - ANTINUCLEAR ANTIBODY POSITIVE [None]
  - DERMATITIS BULLOUS [None]
  - DRUG ERUPTION [None]
  - DYSPHAGIA [None]
  - EPIDERMAL NECROSIS [None]
  - FOOT DEFORMITY [None]
  - INFLAMMATION [None]
  - LEUKOCYTOSIS [None]
  - MELANODERMIA [None]
  - MOUTH ULCERATION [None]
  - OSTEITIS [None]
  - OSTEOARTHRITIS [None]
  - PENILE ULCERATION [None]
  - RASH MACULAR [None]
  - SKIN LESION [None]
  - TOXIC SKIN ERUPTION [None]
